FAERS Safety Report 14160019 (Version 1)
Quarter: 2017Q4

REPORT INFORMATION
  Report Type: Spontaneous
  Country: US (occurrence: US)
  Receive Date: 20171103
  Receipt Date: 20171103
  Transmission Date: 20180321
  Serious: No
  Sender: FDA-Public Use
  Company Number: US-AMGEN-USASL2017126103

PATIENT
  Age: 64 Year

DRUGS (5)
  1. EPOGEN [Suspect]
     Active Substance: ERYTHROPOIETIN
     Indication: PRODUCT USED FOR UNKNOWN INDICATION
     Dosage: UNK
     Route: 065
  2. EPOGEN [Suspect]
     Active Substance: ERYTHROPOIETIN
     Dosage: 6000 UNIT, UNK
     Route: 065
     Dates: start: 20170728
  3. VENOFER [Concomitant]
     Active Substance: IRON SUCROSE
     Dosage: 50 UNIT, UNK
     Dates: start: 20170807
  4. VENOFER [Concomitant]
     Active Substance: IRON SUCROSE
     Dosage: UNK
  5. EPOGEN [Suspect]
     Active Substance: ERYTHROPOIETIN
     Dosage: 6200 UNIT, UNK
     Route: 065
     Dates: start: 20170703, end: 20170712

REACTIONS (2)
  - Wrong technique in product usage process [Unknown]
  - Product storage error [Unknown]

NARRATIVE: CASE EVENT DATE: 20170728
